FAERS Safety Report 8013265 (Version 2)
Quarter: 2013Q2

REPORT INFORMATION
  Report Type: Spontaneous
  Country: US (occurrence: None)
  Receive Date: 20110524
  Receipt Date: 20120621
  Transmission Date: 20140414
  Serious: Yes (Other)
  Sender: FDA-Public Use
  Company Number: 026631

PATIENT
  Age: 47 Year
  Sex: Male
  Weight: 76.8 kg

DRUGS (17)
  1. CIMZIA [Suspect]
     Indication: CROHN^S DISEASE
     Dosage: LAST DOSE: 15-AUG-2011: 400MG, SC IN RIGHT THIGH, LOT: 56148, EXPIRATION DATE: ??  -APR-2013 SUBCUTANEOUS
     Route: 058
     Dates: start: 20090216
  2. AMLODIPINE [Concomitant]
  3. HYDROXYZINE [Concomitant]
  4. ALPRAZOLAM [Concomitant]
  5. OMEPRAZOLE [Concomitant]
  6. ENTOCORT EC [Concomitant]
  7. NITROGLYCERIN [Concomitant]
  8. VITAMIN B12 [Concomitant]
  9. WELLBUTRIN [Concomitant]
  10. LABETALOL [Concomitant]
  11. LYRICA [Concomitant]
  12. HYDROMORPHONE HYDROCHLORIDE [Concomitant]
  13. GALENIC /CALCIUM/VITAMIN D/ [Concomitant]
  14. MULTIVITAMINS [Concomitant]
  15. CARAFATE [Concomitant]
  16. VITAMIN D NOS [Concomitant]
  17. UROCIT-K [Concomitant]

REACTIONS (7)
  - CHEST PAIN [None]
  - FREQUENT BOWEL MOVEMENTS [None]
  - ABDOMINAL PAIN [None]
  - Musculoskeletal pain [None]
  - Injection site pain [None]
  - Excoriation [None]
  - Injection site mass [None]
